FAERS Safety Report 5268998-X (Version None)
Quarter: 2007Q1

REPORT INFORMATION
  Report Type: 
  Country: None (occurrence: None)
  Receive Date: 20061212
  Receipt Date: 20051016
  Transmission Date: 20070707
  Serious: No
  Sender: FDA-Public Use
  Company Number: 2005UW15527

PATIENT
  Age: 63 Year
  Sex: Male

DRUGS (1)
  1. ZOLADEX [Suspect]
     Dosage: 10.8 MG SQ
     Route: 058

REACTIONS (2)
  - CARDIAC FAILURE CONGESTIVE [None]
  - OEDEMA [None]
